FAERS Safety Report 4406463-X (Version None)
Quarter: 2004Q3

REPORT INFORMATION
  Report Type: 
  Country: None (occurrence: None)
  Receive Date: 20040723
  Receipt Date: 20000808
  Transmission Date: 20050211
  Serious: Yes (Hospitalization)
  Sender: FDA-Public Use
  Company Number: US-MERCK-00080891

PATIENT
  Age: 79 Year
  Sex: Female
  Weight: 60 kg

DRUGS (8)
  1. TYLENOL [Concomitant]
     Route: 065
  2. FOSAMAX [Suspect]
     Indication: OSTEOPOROSIS
     Route: 048
     Dates: start: 19990101
  3. FOSAMAX [Suspect]
     Route: 048
     Dates: start: 20030101, end: 20040401
  4. FOSAMAX [Suspect]
     Route: 048
     Dates: start: 20040101
  5. NAPROXEN [Suspect]
     Route: 065
  6. PROCARDIA [Concomitant]
     Indication: HYPERTENSION
     Route: 065
  7. PROPOXYPHENE [Concomitant]
     Route: 065
  8. VIOXX [Suspect]
     Indication: OSTEOARTHRITIS
     Route: 048
     Dates: start: 20000701, end: 20040501

REACTIONS (9)
  - DYSPEPSIA [None]
  - EAR INFECTION [None]
  - FAECAL OCCULT BLOOD POSITIVE [None]
  - FAECES DISCOLOURED [None]
  - GASTRITIS EROSIVE [None]
  - GASTROOESOPHAGEAL REFLUX DISEASE [None]
  - HAEMATOCRIT DECREASED [None]
  - HAEMOGLOBIN DECREASED [None]
  - PHARYNGOLARYNGEAL PAIN [None]
